FAERS Safety Report 20572044 (Version 2)
Quarter: 2022Q1

REPORT INFORMATION
  Report Type: Other
  Country: CA (occurrence: None)
  Receive Date: 20220309
  Receipt Date: 20220322
  Transmission Date: 20220423
  Serious: Yes (Other)
  Sender: FDA-Public Use
  Company Number: CA-ROCHE-2924372

PATIENT
  Age: 52 Year
  Sex: Female

DRUGS (2)
  1. OCREVUS [Suspect]
     Active Substance: OCRELIZUMAB
     Indication: Primary progressive multiple sclerosis
     Dosage: MORE DOSAGE INFORMATION IS 300 MG AT DAY 0 AND 14, THEN 600 MG EVERY 6 MONTH
     Route: 042
     Dates: start: 20210924, end: 20211008
  2. INVEGA [Concomitant]
     Active Substance: PALIPERIDONE

REACTIONS (7)
  - Multiple sclerosis [Unknown]
  - Infusion related reaction [Not Recovered/Not Resolved]
  - Hypoaesthesia [Not Recovered/Not Resolved]
  - Nocturia [Unknown]
  - Pain in extremity [Not Recovered/Not Resolved]
  - Fall [Unknown]
  - Drug ineffective [Unknown]

NARRATIVE: CASE EVENT DATE: 20210924
